FAERS Safety Report 16793943 (Version 1)
Quarter: 2019Q3

REPORT INFORMATION
  Report Type: Spontaneous
  Country: BR (occurrence: BR)
  Receive Date: 20190911
  Receipt Date: 20190911
  Transmission Date: 20191005
  Serious: Yes (Hospitalization)
  Sender: FDA-Public Use
  Company Number: BR-SA-2019SA213516

PATIENT
  Sex: Male
  Weight: 113 kg

DRUGS (3)
  1. LANTUS SOLOSTAR [Suspect]
     Active Substance: INSULIN GLARGINE
     Indication: TYPE 2 DIABETES MELLITUS
     Dosage: FROM 10 TO 12 IU AT MORNING AND 18 IU BEFORE TO SLEEP
     Route: 065
     Dates: start: 2014
  2. GLUCOVANCE [Concomitant]
     Active Substance: GLYBURIDE\METFORMIN HYDROCHLORIDE
     Dosage: 1 IU AT MORNING AND THE UNITS AT NIGHT WERE USED ACCORDING THE GLYCEMIA
     Route: 065
  3. APIDRA [Concomitant]
     Active Substance: INSULIN GLULISINE
     Dosage: 2 OR 3 TIMES DAILY/ 15 TO 20 IU BEFORE EACH MANLY MEAL (BREAKFAST, LUNCH AND DINNER)
     Route: 065

REACTIONS (8)
  - Glycosylated haemoglobin increased [Unknown]
  - Surgery [Unknown]
  - Inappropriate schedule of product administration [Unknown]
  - Balance disorder [Unknown]
  - Toe amputation [Unknown]
  - Physical disability [Unknown]
  - Infarction [Unknown]
  - Product storage error [Unknown]

NARRATIVE: CASE EVENT DATE: 2011
